FAERS Safety Report 24723998 (Version 2)
Quarter: 2025Q1

REPORT INFORMATION
  Report Type: Report from Study
  Country: US (occurrence: US)
  Receive Date: 20241211
  Receipt Date: 20250101
  Transmission Date: 20250409
  Serious: Yes (Hospitalization, Other)
  Sender: ABBVIE
  Company Number: US-ABBVIE-6038287

PATIENT
  Age: 86 Year
  Sex: Female

DRUGS (1)
  1. SKYRIZI [Suspect]
     Active Substance: RISANKIZUMAB-RZAA
     Indication: Product used for unknown indication
     Route: 058
     Dates: start: 20240109

REACTIONS (5)
  - Loss of consciousness [Recovered/Resolved]
  - Haemorrhage [Recovering/Resolving]
  - Seizure [Recovering/Resolving]
  - Fall [Recovering/Resolving]
  - Head injury [Recovering/Resolving]

NARRATIVE: CASE EVENT DATE: 20240101
